FAERS Safety Report 7077288-4 (Version None)
Quarter: 2010Q4

REPORT INFORMATION
  Report Type: 
  Country: None (occurrence: None)
  Receive Date: 20101101
  Receipt Date: 20101029
  Transmission Date: 20110411
  Serious: Yes (Hospitalization)
  Sender: FDA-Public Use
  Company Number: CHPA2010FR15359

PATIENT
  Sex: Male

DRUGS (10)
  1. SCOPOLAMINE [Suspect]
     Indication: SALIVARY HYPERSECRETION
     Dosage: UNK, UNK
     Route: 061
     Dates: start: 20100114, end: 20100118
  2. AZILECT [Concomitant]
     Dosage: 1 MG, UNK
     Route: 048
     Dates: start: 20100114, end: 20100118
  3. RIVOTRIL [Concomitant]
  4. NEXIUM [Concomitant]
  5. SINEMET [Concomitant]
  6. MODOPAR [Concomitant]
     Dosage: UNK, UNK
     Dates: start: 20100118
  7. MANTADIX [Concomitant]
  8. COMTAN [Concomitant]
  9. GUTRON [Concomitant]
  10. ALLOPURINOL [Concomitant]

REACTIONS (4)
  - CONFUSIONAL STATE [None]
  - FALL [None]
  - HALLUCINATION [None]
  - OFF LABEL USE [None]
